FAERS Safety Report 7319671-5 (Version None)
Quarter: 2011Q1

REPORT INFORMATION
  Report Type: 
  Country: None (occurrence: None)
  Receive Date: 20110228
  Receipt Date: 20100715
  Transmission Date: 20110831
  Serious: Yes (Other)
  Sender: FDA-Public Use
  Company Number: A0870627A

PATIENT
  Age: 26 Year
  Sex: Male

DRUGS (2)
  1. LAMICTAL [Suspect]
     Dosage: 300MG TWICE PER DAY
     Route: 048
     Dates: start: 20070101
  2. OXCARBAZEPINE [Concomitant]

REACTIONS (1)
  - CONVULSION [None]
